FAERS Safety Report 23463788 (Version 1)
Quarter: 2024Q1

REPORT INFORMATION
  Report Type: Report from Study
  Country: US (occurrence: US)
  Receive Date: 20240201
  Receipt Date: 20240201
  Transmission Date: 20240410
  Serious: Yes (Other)
  Sender: FDA-Public Use
  Company Number: US-ABBVIE-5606263

PATIENT
  Age: 41 Year
  Sex: Male

DRUGS (1)
  1. SKYRIZI [Suspect]
     Active Substance: RISANKIZUMAB-RZAA
     Indication: Psoriasis
     Route: 058
     Dates: start: 20231012

REACTIONS (4)
  - Melanocytic naevus [Unknown]
  - Precancerous skin lesion [Unknown]
  - Hypoaesthesia [Unknown]
  - Pruritus [Unknown]

NARRATIVE: CASE EVENT DATE: 20231225
